FAERS Safety Report 9323004 (Version 2)
Quarter: 2014Q1

REPORT INFORMATION
  Report Type: Spontaneous
  Country: US (occurrence: US)
  Receive Date: 20130603
  Receipt Date: 20140213
  Transmission Date: 20141002
  Serious: Yes (Hospitalization)
  Sender: FDA-Public Use
  Company Number: US-B.I. PHARMACEUTICALS,INC./RIDGEFIELD-2013-BI-14859BP

PATIENT
  Age: 79 Year
  Sex: Male
  Weight: 118.84 kg

DRUGS (15)
  1. PRADAXA [Suspect]
     Indication: ATRIAL FIBRILLATION
     Dosage: 300 MG
     Route: 048
     Dates: start: 20120123, end: 20120213
  2. ASPIRIN [Suspect]
     Indication: ATRIAL FIBRILLATION
     Dosage: 162 MG
     Dates: end: 20120213
  3. CYMBALTA [Concomitant]
     Dosage: 60 MG
  4. ALLOPURINOL [Concomitant]
     Dosage: 300 MG
  5. METOCLOPRAMIDE [Concomitant]
     Dosage: 10 MG
  6. GLIMEPIRIDE [Concomitant]
     Dosage: 8 MG
  7. FAMOTIDINE [Concomitant]
     Dosage: 40 MG
  8. DIOVAN [Concomitant]
     Dosage: 60 MG
  9. COREG [Concomitant]
     Dosage: 12.5 MG
  10. LASIX [Concomitant]
     Dosage: 40 MG
  11. AMLODIPINE [Concomitant]
     Dosage: 10 MG
  12. TRAMADOL [Concomitant]
     Dosage: 100 MG
  13. TYLENOL [Concomitant]
  14. NOVOLIN-R [Concomitant]
     Indication: TYPE 1 DIABETES MELLITUS
  15. LANTUS [Concomitant]
     Indication: TYPE 1 DIABETES MELLITUS

REACTIONS (5)
  - Subdural haemorrhage [Unknown]
  - Subdural haematoma [Unknown]
  - Fall [Unknown]
  - Coagulopathy [Recovered/Resolved]
  - Haematuria [Recovered/Resolved]
